FAERS Safety Report 10077510 (Version 1)
Quarter: 2014Q2

REPORT INFORMATION
  Report Type: Spontaneous
  Country: US (occurrence: US)
  Receive Date: 20140414
  Receipt Date: 20140414
  Transmission Date: 20141212
  Serious: No
  Sender: FDA-Public Use
  Company Number: US-BANPHARM-20131639

PATIENT
  Age: 69 Year
  Sex: Female
  Weight: 80.74 kg

DRUGS (11)
  1. ALEVE LIQUID GELS 220 MG [Suspect]
     Indication: ARTHRITIS
     Dosage: 2 DF, ONCE DAILY,
     Route: 048
     Dates: start: 20130825
  2. LOW DOSE BAYER ASPIRIN [Concomitant]
  3. METOPROLOL [Concomitant]
  4. LISINOPRIL [Concomitant]
  5. LOSARTAN [Concomitant]
  6. METFORMIN [Concomitant]
  7. LORAZEPAM [Concomitant]
  8. SHEA VITAMIN [Concomitant]
  9. MAGNESIUM [Concomitant]
  10. FOLIC ACID [Concomitant]
  11. VITAMIN D [Concomitant]

REACTIONS (1)
  - Drug ineffective [Unknown]
